FAERS Safety Report 5082372-0 (Version None)
Quarter: 2006Q3

REPORT INFORMATION
  Report Type: 
  Country: None (occurrence: None)
  Receive Date: 20060814
  Receipt Date: 20060807
  Transmission Date: 20061208
  Serious: Yes (Death, Hospitalization)
  Sender: FDA-Public Use
  Company Number: 2006-BP-08719RO

PATIENT
  Age: 44 Year
  Sex: Male
  Weight: 85.3 kg

DRUGS (7)
  1. AZATHIOPRINE [Suspect]
     Indication: GASTROINTESTINAL DISORDER
     Dosage: 150 MG DAILY (50 MG), PO
     Route: 048
  2. REMICADE [Suspect]
     Indication: GASTROINTESTINAL DISORDER
     Dosage: IV
     Route: 042
  3. COLAZAL (BALSALAZIDE SODIUM) [Suspect]
  4. EXTRA STRENGTH TYLENOL [Suspect]
     Indication: SCROTAL PAIN
     Dosage: AVERAGING UP TO 12 PER DAY OVER 5 TO 7 DAYS, PO
     Route: 048
  5. DOXCYCLINE (DOXCYCLINE) [Suspect]
     Indication: SCROTAL INFECTION
     Dosage: PO
     Route: 048
     Dates: start: 20060602
  6. ADVIL [Suspect]
     Indication: SCROTAL PAIN
  7. ALEVE [Suspect]
     Indication: SCROTAL PAIN

REACTIONS (11)
  - ASCITES [None]
  - DIALYSIS [None]
  - HEPATIC FAILURE [None]
  - HEPATOTOXICITY [None]
  - MEMORY IMPAIRMENT [None]
  - OEDEMA PERIPHERAL [None]
  - ORCHITIS [None]
  - RECTAL TENESMUS [None]
  - RENAL FAILURE [None]
  - RHABDOMYOLYSIS [None]
  - TENDERNESS [None]
